FAERS Safety Report 5932607 (Version 2)
Quarter: 2020Q3

REPORT INFORMATION
  Report Type: Report from Study
  Country: US (occurrence: US)
  Receive Date: 20051130
  Receipt Date: 20091005
  Transmission Date: 20201105
  Serious: Yes (Death, Hospitalization)
  Sender: FDA-Public Use
  Company Number: US-JNJFOC-20051100999

PATIENT
  Age: 1 Year
  Sex: Male
  Weight: 5.8 kg

DRUGS (2)
  1. CISAPRIDE [Suspect]
     Active Substance: CISAPRIDE
     Route: 050
     Dates: start: 20050718, end: 20051021
  2. CISAPRIDE [Suspect]
     Active Substance: CISAPRIDE
     Indication: GASTROOESOPHAGEAL REFLUX DISEASE
     Route: 050
     Dates: start: 20050718, end: 20051021

REACTIONS (2)
  - Gastrointestinal haemorrhage [Fatal]
  - Chronic hepatic failure [Fatal]

NARRATIVE: CASE EVENT DATE: 20051023
